FAERS Safety Report 8866145 (Version 2)
Quarter: 2013Q1

REPORT INFORMATION
  Report Type: Spontaneous
  Country: IT (occurrence: IT)
  Receive Date: 20121025
  Receipt Date: 20130201
  Transmission Date: 20140127
  Serious: Yes (Other)
  Sender: FDA-Public Use
  Company Number: IT-ROCHE-1147822

PATIENT
  Age: 69 Year
  Sex: Female

DRUGS (6)
  1. PEGASYS [Suspect]
     Indication: HEPATITIS C
     Route: 058
     Dates: start: 20120217, end: 20120906
  2. PEGASYS [Suspect]
     Dosage: DOSE REDUCED
     Route: 058
  3. COPEGUS [Suspect]
     Indication: HEPATITIS C
     Route: 048
     Dates: start: 20120217, end: 20120906
  4. COPEGUS [Suspect]
     Dosage: DOSE REDUCED
     Route: 048
  5. PERIDON [Concomitant]
     Route: 048
  6. TELAPREVIR [Concomitant]
     Route: 065
     Dates: start: 20120216

REACTIONS (5)
  - Abdominal pain [Unknown]
  - Neutropenia [Unknown]
  - Weight decreased [Unknown]
  - Haematochezia [Unknown]
  - Rosacea [Unknown]
